FAERS Safety Report 6908640-2 (Version None)
Quarter: 2010Q3

REPORT INFORMATION
  Report Type: 
  Country: None (occurrence: None)
  Receive Date: 20100805
  Receipt Date: 20100802
  Transmission Date: 20110219
  Serious: Yes (Hospitalization)
  Sender: FDA-Public Use
  Company Number: GB-MERCK-1007GBR00072

PATIENT
  Sex: Male

DRUGS (1)
  1. SINEMET [Suspect]
     Indication: PARKINSON'S DISEASE
     Route: 048

REACTIONS (3)
  - CEREBROVASCULAR ACCIDENT [None]
  - DRUG ADMINISTRATION ERROR [None]
  - DYSPHAGIA [None]
